FAERS Safety Report 19791356 (Version 1)
Quarter: 2021Q3

REPORT INFORMATION
  Report Type: Spontaneous
  Country: US (occurrence: US)
  Receive Date: 20210906
  Receipt Date: 20210906
  Transmission Date: 20211014
  Serious: Yes (Hospitalization)
  Sender: FDA-Public Use
  Company Number: US-JNJFOC-20210849529

PATIENT
  Age: 36 Year
  Sex: Female
  Weight: 82 kg

DRUGS (1)
  1. PARACETAMOL [Suspect]
     Active Substance: ACETAMINOPHEN
     Indication: SUICIDE ATTEMPT
     Dosage: SINGLE DOSE OF 40000 MG
     Route: 065
     Dates: start: 20000905, end: 20000905

REACTIONS (12)
  - PCO2 decreased [Recovered/Resolved]
  - Intentional overdose [Recovered/Resolved]
  - Blood chloride increased [Recovered/Resolved]
  - PO2 decreased [Recovered/Resolved]
  - Blood pH decreased [Recovered/Resolved]
  - Heart rate increased [Recovered/Resolved]
  - Blood bicarbonate decreased [Recovered/Resolved]
  - Suicide attempt [Recovered/Resolved]
  - White blood cell count increased [Recovered/Resolved]
  - Blood calcium decreased [Recovered/Resolved]
  - Diarrhoea [Recovered/Resolved]
  - Acute hepatic failure [Recovered/Resolved]

NARRATIVE: CASE EVENT DATE: 20000905
